FAERS Safety Report 9146917 (Version 1)
Quarter: 2013Q1

REPORT INFORMATION
  Report Type: Spontaneous
  Country: US (occurrence: US)
  Receive Date: 20130307
  Receipt Date: 20130307
  Transmission Date: 20140127
  Serious: Yes (Other)
  Sender: FDA-Public Use
  Company Number: US-PFIZER INC-2013075184

PATIENT
  Sex: 0

DRUGS (9)
  1. REVATIO [Suspect]
     Dosage: 20 MG, 3X/DAY
  2. METOPROLOL TARTRATE [Concomitant]
     Dosage: UNK
  3. NORVASC [Concomitant]
     Dosage: UNK
  4. COUMADIN [Concomitant]
     Dosage: UNK
  5. AMARYL [Concomitant]
     Dosage: UNK
  6. ZOCOR [Concomitant]
     Dosage: UNK
  7. BABY ASPIRIN [Concomitant]
     Dosage: UNK
  8. VITAMIN D [Concomitant]
     Dosage: UNK
  9. BUMEX [Concomitant]
     Dosage: UNK

REACTIONS (3)
  - Epistaxis [Unknown]
  - Diarrhoea [Unknown]
  - Tremor [Unknown]
